FAERS Safety Report 10311285 (Version 1)
Quarter: 2014Q3

REPORT INFORMATION
  Report Type: Spontaneous
  Country: DE (occurrence: DE)
  Receive Date: 20140717
  Receipt Date: 20140717
  Transmission Date: 20150326
  Serious: Yes (Other)
  Sender: FDA-Public Use
  Company Number: DE-TEVA-493454GER

PATIENT
  Age: 1 Day
  Sex: Female
  Weight: 2.35 kg

DRUGS (1)
  1. CARBAMAZEPIN [Suspect]
     Active Substance: CARBAMAZEPINE
     Route: 064

REACTIONS (6)
  - Gastrooesophageal reflux disease [Unknown]
  - Small for dates baby [Unknown]
  - Neonatal respiratory distress syndrome [Recovered/Resolved]
  - Placental insufficiency [Unknown]
  - Hypoglycaemia neonatal [Recovered/Resolved]
  - Foetal exposure during pregnancy [Unknown]

NARRATIVE: CASE EVENT DATE: 20130610
